FAERS Safety Report 26042692 (Version 2)
Quarter: 2025Q4

REPORT INFORMATION
  Report Type: Report from Study
  Country: EU (occurrence: EU)
  Receive Date: 20251113
  Receipt Date: 20251114
  Transmission Date: 20260118
  Serious: Yes (Death, Other)
  Sender: VERITY PHARMACEUTICALS INC.
  Company Number: EU-VER-202500098

PATIENT
  Sex: Male

DRUGS (3)
  1. TRIPTORELIN PAMOATE [Suspect]
     Active Substance: TRIPTORELIN PAMOATE
     Indication: Prostate cancer
     Dosage: 22.5 MILLIGRAM(S), IN 6 MONTH, 1 DAY THERAPY DURATION, 15533212 PAMORELIN DEPOT INJPDR 22.5MG SOLV 2
     Route: 030
     Dates: start: 20241120, end: 20241120
  2. TRIPTORELIN PAMOATE [Suspect]
     Active Substance: TRIPTORELIN PAMOATE
     Indication: Prostate cancer
     Dosage: POWDER AND SOLVENT FOR SUSPENSION FOR INJECTION, 22.5 MILLIGRAM(S), IN 6 MONTH, 1 DAY THERAPY DURATI
     Route: 030
     Dates: start: 20250523
  3. TRIPTORELIN PAMOATE [Suspect]
     Active Substance: TRIPTORELIN PAMOATE
     Indication: Prostate cancer
     Dosage: SUSPENSION FOR INJECTION, 22.5 MILLIGRAM(S), IN 6 MONTH, 15533212 PAMORELIN DEPOT INJPDR 22.5MG SOLV
     Route: 030
     Dates: start: 20220518, end: 20220518

REACTIONS (3)
  - Gait disturbance [Unknown]
  - Death [Fatal]
  - General physical health deterioration [Unknown]
